FAERS Safety Report 24274865 (Version 1)
Quarter: 2024Q3

REPORT INFORMATION
  Report Type: Spontaneous
  Country: MX (occurrence: MX)
  Receive Date: 20240902
  Receipt Date: 20240902
  Transmission Date: 20241016
  Serious: Yes (Hospitalization)
  Sender: ELI LILLY AND CO
  Company Number: MX-ELI_LILLY_AND_COMPANY-MX202408016287

PATIENT

DRUGS (1)
  1. VERZENIO [Suspect]
     Active Substance: ABEMACICLIB
     Indication: Breast cancer
     Dosage: UNK, UNKNOWN
     Route: 065

REACTIONS (3)
  - Hypovolaemic shock [Unknown]
  - Colitis [Unknown]
  - Diarrhoea [Unknown]
